FAERS Safety Report 8906418 (Version 2)
Quarter: 2013Q1

REPORT INFORMATION
  Report Type: Spontaneous
  Country: US (occurrence: None)
  Receive Date: 20121108
  Receipt Date: 20121113
  Transmission Date: 20140127
  Serious: Yes (Hospitalization, Other)
  Sender: FDA-Public Use
  Company Number: 2012AP003742

PATIENT
  Age: 63 Year
  Sex: Female

DRUGS (7)
  1. LISINOPRIL TABLETS [Suspect]
  2. IBUPROFEN [Suspect]
     Dosage: 2 WEEK
  3. SODIUM CHLORIDE [Suspect]
     Route: 048
  4. FLUDROCORTISONE [Suspect]
  5. ANTIBIOTICS [Concomitant]
  6. METOPROLOL [Concomitant]
  7. ASPIRIN [Concomitant]

REACTIONS (7)
  - Glomerulonephritis membranous [None]
  - Renal salt-wasting syndrome [None]
  - Hypoaldosteronism [None]
  - Hypertension [None]
  - Renal failure acute [None]
  - Hyperkalaemia [None]
  - Renal aplasia [None]
